FAERS Safety Report 4684054-3 (Version None)
Quarter: 2005Q2

REPORT INFORMATION
  Report Type: 
  Country: None (occurrence: None)
  Receive Date: 20050607
  Receipt Date: 20050524
  Transmission Date: 20051028
  Serious: Yes (Other)
  Sender: FDA-Public Use
  Company Number: PHBS2005OM07890

PATIENT
  Age: 27 Year
  Sex: Female

DRUGS (2)
  1. IMATINIB [Suspect]
     Indication: CHRONIC MYELOID LEUKAEMIA
     Dosage: 400 MG/DAY
     Route: 065
  2. FERROUS FUMARATE [Concomitant]
     Indication: IRON DEFICIENCY ANAEMIA

REACTIONS (4)
  - ABORTION COMPLETE [None]
  - DRUG EXPOSURE DURING PREGNANCY [None]
  - IRON DEFICIENCY ANAEMIA [None]
  - VAGINAL HAEMORRHAGE [None]
